FAERS Safety Report 9305220 (Version 1)
Quarter: 2013Q2

REPORT INFORMATION
  Report Type: Spontaneous
  Country: US (occurrence: US)
  Receive Date: 20130523
  Receipt Date: 20130523
  Transmission Date: 20140414
  Serious: Yes (Hospitalization)
  Sender: FDA-Public Use
  Company Number: US-BAYER-2013-061634

PATIENT
  Age: 30 Year
  Sex: Female
  Weight: 49.89 kg

DRUGS (10)
  1. BEYAZ [Suspect]
     Dosage: UNK
  2. CIPROFLOXACIN [Concomitant]
     Dosage: 500 MG, UNK
  3. AVELOX [Concomitant]
     Dosage: 400 MG, QD
  4. PREDNISONE [Concomitant]
     Dosage: UNK
  5. NASONEX [Concomitant]
     Route: 045
  6. PREVACID [Concomitant]
     Dosage: 15 MG, QD
  7. HYCODAN [HYDROCODONE BITARTRATE] [Concomitant]
     Indication: COUGH
     Dosage: 120 ML, UNK
  8. XOPENEX [Concomitant]
     Dosage: 2 PUFF(S), PRN
  9. INVANZ [Concomitant]
     Dosage: 1 G, QD
     Route: 042
  10. PRENATAL VITAMINS [VIT C,B5,B12,D2,B3,B6,RETINOL PALMIT,B2,B1 MONO [Concomitant]

REACTIONS (3)
  - Subclavian vein thrombosis [Recovered/Resolved]
  - Axillary vein thrombosis [Recovered/Resolved]
  - Thrombophlebitis superficial [Recovered/Resolved]
